FAERS Safety Report 4801859-6 (Version None)
Quarter: 2005Q4

REPORT INFORMATION
  Report Type: 
  Country: None (occurrence: None)
  Receive Date: 20051011
  Receipt Date: 20050915
  Transmission Date: 20060501
  Serious: Yes (Other)
  Sender: FDA-Public Use
  Company Number: PHO 2005-025

PATIENT

DRUGS (1)
  1. PHOTOFRIN [Suspect]
     Indication: SARCOMATOSIS
     Dosage: 2.5 MG/KG IV/BETWEEN MAY 97 + DEC 98
     Route: 042

REACTIONS (4)
  - ACUTE RESPIRATORY DISTRESS SYNDROME [None]
  - FLUID OVERLOAD [None]
  - POST PROCEDURAL COMPLICATION [None]
  - PULMONARY EMBOLISM [None]
